FAERS Safety Report 10224988 (Version 2)
Quarter: 2014Q3

REPORT INFORMATION
  Report Type: Spontaneous
  Country: JP (occurrence: JP)
  Receive Date: 20140609
  Receipt Date: 20140911
  Transmission Date: 20150326
  Serious: Yes (Hospitalization)
  Sender: FDA-Public Use
  Company Number: JP-SA-2014SA073806

PATIENT
  Age: 55 Year
  Sex: Male
  Weight: 56 kg

DRUGS (17)
  1. AVASTIN [Concomitant]
     Active Substance: BEVACIZUMAB
     Dates: start: 201402, end: 201404
  2. ELPLAT [Suspect]
     Active Substance: OXALIPLATIN
     Indication: COLON CANCER
     Route: 041
     Dates: start: 20140523, end: 20140523
  3. XELODA [Suspect]
     Active Substance: CAPECITABINE
     Indication: COLON CANCER
     Dosage: DAILY DOSE 4000 MG
     Route: 048
     Dates: start: 20140314, end: 20140316
  4. XELODA [Suspect]
     Active Substance: CAPECITABINE
     Indication: COLON CANCER
     Dosage: DAILY DOSE 4000 MG
     Route: 048
     Dates: start: 20140404, end: 20140417
  5. XELODA [Suspect]
     Active Substance: CAPECITABINE
     Indication: COLON CANCER
     Dosage: DAILY DOSE 4000 MG
     Route: 048
     Dates: start: 20140613, end: 20140626
  6. ELPLAT [Suspect]
     Active Substance: OXALIPLATIN
     Indication: COLON CANCER
     Route: 041
     Dates: start: 20140314, end: 20140314
  7. ELPLAT [Suspect]
     Active Substance: OXALIPLATIN
     Indication: COLON CANCER
     Route: 041
     Dates: start: 20140404, end: 20140404
  8. XELODA [Suspect]
     Active Substance: CAPECITABINE
     Indication: COLON CANCER
     Dosage: DAILY DOSE 4000 MG
     Route: 048
     Dates: start: 20140221, end: 20140306
  9. MORPHINE SULFATE. [Concomitant]
     Active Substance: MORPHINE SULFATE
     Dates: start: 20140224, end: 20140331
  10. ELPLAT [Suspect]
     Active Substance: OXALIPLATIN
     Indication: COLON CANCER
     Route: 041
     Dates: start: 20130930, end: 20130930
  11. XELODA [Suspect]
     Active Substance: CAPECITABINE
     Indication: COLON CANCER
     Dosage: DAILY DOSE 4000 MG
     Route: 048
     Dates: start: 20131028, end: 20140213
  12. ELPLAT [Suspect]
     Active Substance: OXALIPLATIN
     Indication: COLON CANCER
     Route: 041
     Dates: start: 20140613, end: 20140613
  13. ELPLAT [Suspect]
     Active Substance: OXALIPLATIN
     Indication: COLON CANCER
     Route: 041
     Dates: start: 20140425, end: 20140425
  14. XELODA [Suspect]
     Active Substance: CAPECITABINE
     Indication: COLON CANCER
     Dosage: DAILY DOSE 4000 MG
     Route: 048
     Dates: start: 20140425, end: 20140508
  15. ELPLAT [Suspect]
     Active Substance: OXALIPLATIN
     Indication: COLON CANCER
     Route: 041
     Dates: start: 20140221, end: 20140221
  16. XELODA [Suspect]
     Active Substance: CAPECITABINE
     Indication: COLON CANCER
     Dosage: DAILY DOSE 4000 MG
     Route: 048
     Dates: start: 20130930, end: 20131013
  17. XELODA [Suspect]
     Active Substance: CAPECITABINE
     Indication: COLON CANCER
     Dosage: DAILY DOSE 4000 MG
     Route: 048
     Dates: start: 20140523, end: 20140605

REACTIONS (1)
  - Leukoencephalopathy [Recovered/Resolved]

NARRATIVE: CASE EVENT DATE: 20140316
